FAERS Safety Report 7821711-1 (Version None)
Quarter: 2011Q4

REPORT INFORMATION
  Report Type: 
  Country: None (occurrence: None)
  Receive Date: 20111018
  Receipt Date: 20100909
  Transmission Date: 20120403
  Serious: No
  Sender: FDA-Public Use
  Company Number: US-ASTRAZENECA-2010SE42453

PATIENT
  Age: 65 Year
  Sex: Male
  Weight: 103.4 kg

DRUGS (4)
  1. PREVACID [Concomitant]
  2. ALBUTEROL [Concomitant]
  3. SYMBICORT [Suspect]
     Indication: ASTHMA
     Dosage: TWICE A DAY
     Route: 055
  4. TRICOR [Concomitant]

REACTIONS (4)
  - CANDIDIASIS [None]
  - TONGUE DISCOLOURATION [None]
  - OROPHARYNGEAL PAIN [None]
  - GLOSSODYNIA [None]
